FAERS Safety Report 11946297 (Version 3)
Quarter: 2016Q2

REPORT INFORMATION
  Report Type: Report from Study
  Country: US (occurrence: US)
  Receive Date: 20160125
  Receipt Date: 20160421
  Transmission Date: 20160815
  Serious: No
  Sender: FDA-Public Use
  Company Number: US-AMGEN-USASL2016001176

PATIENT
  Age: 77 Year
  Sex: Male

DRUGS (7)
  1. REPATHA [Suspect]
     Active Substance: EVOLOCUMAB
     Indication: HYPERCHOLESTEROLAEMIA
     Dosage: 140 MG, Q2WK
     Route: 065
     Dates: start: 20151222
  2. ASPIRIN                            /00002701/ [Concomitant]
     Active Substance: ASPIRIN
     Dosage: 325 MG, BID
  3. ATENOLOL. [Concomitant]
     Active Substance: ATENOLOL
     Dosage: 25 MG, UNK
  4. VITAMIN D                          /00107901/ [Concomitant]
     Active Substance: ERGOCALCIFEROL
     Dosage: UNK
  5. AMLODIPINE [Concomitant]
     Active Substance: AMLODIPINE BESYLATE
     Dosage: 10 MG, QD
     Route: 048
  6. LISINOPRIL. [Concomitant]
     Active Substance: LISINOPRIL
     Dosage: 40 MG, BID
  7. FISH OIL [Concomitant]
     Active Substance: FISH OIL
     Dosage: 1000 MG, UNK

REACTIONS (10)
  - Myalgia [Unknown]
  - Headache [Recovered/Resolved]
  - Injection site pain [Recovering/Resolving]
  - Pain in extremity [Unknown]
  - Nasopharyngitis [Unknown]
  - Nausea [Unknown]
  - Rhinorrhoea [Not Recovered/Not Resolved]
  - Cough [Unknown]
  - Sputum discoloured [Unknown]
  - Injection site haemorrhage [Recovering/Resolving]

NARRATIVE: CASE EVENT DATE: 20160219
